FAERS Safety Report 23618741 (Version 3)
Quarter: 2024Q2

REPORT INFORMATION
  Report Type: Report from Study
  Country: US (occurrence: US)
  Receive Date: 20240311
  Receipt Date: 20240418
  Transmission Date: 20240716
  Serious: Yes (Hospitalization, Other)
  Sender: FDA-Public Use
  Company Number: US-ABBVIE-5671634

PATIENT
  Sex: Female

DRUGS (3)
  1. SKYRIZI [Suspect]
     Active Substance: RISANKIZUMAB-RZAA
     Indication: Psoriasis
     Dosage: UNKNOWN
     Route: 058
     Dates: start: 20231102
  2. SKYRIZI [Suspect]
     Active Substance: RISANKIZUMAB-RZAA
     Route: 058
     Dates: start: 20231101, end: 20231101
  3. XANAX [Suspect]
     Active Substance: ALPRAZOLAM
     Indication: Product used for unknown indication
     Route: 065

REACTIONS (12)
  - Asthma [Recovering/Resolving]
  - Disability [Unknown]
  - Skin plaque [Recovering/Resolving]
  - Stress [Unknown]
  - Spondylolisthesis [Recovering/Resolving]
  - Pain [Unknown]
  - Sleep apnoea syndrome [Recovering/Resolving]
  - Psoriasis [Not Recovered/Not Resolved]
  - Fatigue [Unknown]
  - Anxiety [Recovering/Resolving]
  - Asthma [Recovered/Resolved]
  - Therapeutic response shortened [Recovering/Resolving]
